FAERS Safety Report 8905796 (Version 1)
Quarter: 2012Q4

REPORT INFORMATION
  Report Type: Report from Study
  Country: SE (occurrence: SE)
  Receive Date: 20121113
  Receipt Date: 20121113
  Transmission Date: 20130627
  Serious: Yes (Hospitalization)
  Sender: FDA-Public Use
  Company Number: SE-PFIZER INC-2012279241

PATIENT
  Age: 61 Year
  Sex: Female
  Weight: 81.9 kg

DRUGS (22)
  1. GENOTROPIN [Suspect]
     Dosage: 0.2 mg, 1x/day,7 injections/week
     Route: 058
     Dates: start: 20061106
  2. CORTISONE ACETATE [Concomitant]
     Indication: ACTH DECREASED
     Dosage: UNK
     Dates: start: 19860301
  3. GESTAPURAN [Concomitant]
     Indication: LUTEINISING HORMONE DEFICIENCY
     Dosage: UNK
     Dates: start: 19890101
  4. GESTAPURAN [Concomitant]
     Indication: FOLLICLE-STIMULATING HORMONE DEFICIENCY
  5. GESTAPURAN [Concomitant]
     Indication: OVARIAN DISORDER
  6. GESTAPURAN [Concomitant]
     Indication: HYPOGONADISM
  7. VOLTAREN ^CIBA-GEIGY^ [Concomitant]
     Indication: SCIATICA
     Dosage: UNK
     Dates: start: 19960202
  8. CATAPRESAN [Concomitant]
     Indication: MIGRAINE
     Dosage: UNK
     Dates: start: 19910101
  9. KLIOGEST ^NOVO INDUSTRI^ [Concomitant]
     Indication: LUTEINISING HORMONE DEFICIENCY
     Dosage: UNK
     Dates: start: 19960709
  10. KLIOGEST ^NOVO INDUSTRI^ [Concomitant]
     Indication: FOLLICLE-STIMULATING HORMONE DEFICIENCY
  11. KLIOGEST ^NOVO INDUSTRI^ [Concomitant]
     Indication: OVARIAN DISORDER
  12. KLIOGEST ^NOVO INDUSTRI^ [Concomitant]
     Indication: HYPOGONADISM
  13. CORTAL [Concomitant]
     Indication: ACTH DECREASED
     Dosage: UNK
     Dates: start: 19860301
  14. IMIGRAN [Concomitant]
     Indication: HEADACHE
     Dosage: UNK
     Dates: start: 19970228
  15. CIPRAMIL [Concomitant]
     Indication: DEPRESSIVE DISORDER
     Dosage: UNK
     Dates: start: 19980520
  16. LORABID [Concomitant]
     Indication: RESPIRATORY TRACT INFECTION
     Dosage: UNK
     Dates: start: 19980511
  17. DOXYFERM [Concomitant]
     Indication: RESPIRATORY TRACT INFECTION
     Dosage: UNK
     Dates: start: 19980525
  18. KAVEPENIN [Concomitant]
     Indication: ACUTE TONSILLITIS
     Dosage: UNK
     Dates: start: 19970310
  19. BRICANYL [Concomitant]
     Indication: ASTHMA
     Dosage: UNK
     Dates: start: 19880301
  20. HYDROCORTISONE [Concomitant]
     Indication: ACTH DECREASED
     Dosage: UNK
     Dates: start: 20040325
  21. LEVOTHYROXINE [Concomitant]
     Indication: THYROID DISORDER
     Dosage: UNK
     Dates: start: 19861001
  22. LEVOTHYROXINE [Concomitant]
     Indication: PRIMARY HYPOTHYROIDISM

REACTIONS (2)
  - Arthropathy [Unknown]
  - Arthropathy [Unknown]
